FAERS Safety Report 10744970 (Version 2)
Quarter: 2015Q1

REPORT INFORMATION
  Report Type: Report from Study
  Country: US (occurrence: US)
  Receive Date: 20150128
  Receipt Date: 20150312
  Transmission Date: 20150721
  Serious: Yes (Death)
  Sender: FDA-Public Use
  Company Number: US-SA-2015SA008049

PATIENT
  Age: 65 Year
  Sex: Female
  Weight: 48.3 kg

DRUGS (6)
  1. ATIVAN [Concomitant]
     Active Substance: LORAZEPAM
     Route: 065
  2. DILAUDID [Concomitant]
     Active Substance: HYDROMORPHONE HYDROCHLORIDE
     Route: 065
  3. HALDOL [Concomitant]
     Active Substance: HALOPERIDOL
     Route: 065
  4. LOVENOX [Suspect]
     Active Substance: ENOXAPARIN SODIUM
     Indication: THROMBOSIS
     Dosage: REDOSED DUE TO EXTREME WEIGHT LOSS IN HOSPITAL
     Route: 058
  5. ADVAIR HFA [Concomitant]
     Active Substance: FLUTICASONE PROPIONATE\SALMETEROL XINAFOATE
     Route: 065
  6. LOVENOX [Suspect]
     Active Substance: ENOXAPARIN SODIUM
     Indication: THROMBOSIS
     Route: 058

REACTIONS (8)
  - Dyspnoea [Fatal]
  - Myocardial infarction [Fatal]
  - Hypertension [Unknown]
  - Lethargy [Fatal]
  - Chronic obstructive pulmonary disease [Unknown]
  - Non-small cell lung cancer metastatic [Fatal]
  - Cough [Fatal]
  - Respiratory distress [Fatal]

NARRATIVE: CASE EVENT DATE: 20140517
